FAERS Safety Report 6711727-0 (Version None)
Quarter: 2010Q2

REPORT INFORMATION
  Report Type: 
  Country: None (occurrence: None)
  Receive Date: 20100505
  Receipt Date: 20100427
  Transmission Date: 20101027
  Serious: Yes (Hospitalization, Other)
  Sender: FDA-Public Use
  Company Number: FR-ROCHE-700062

PATIENT
  Sex: Male
  Weight: 54.4 kg

DRUGS (6)
  1. PEGINTERFERON ALFA-2A [Suspect]
     Dosage: LAST DOSE: 1 APRIL 2010
     Route: 058
     Dates: start: 20091211
  2. RIBAVIRIN [Suspect]
     Dosage: LAST DOSE 1 APRIL 2010.
     Route: 048
     Dates: start: 20091211
  3. REVIA [Concomitant]
     Route: 048
     Dates: start: 20100218
  4. AERIUS [Concomitant]
     Route: 048
     Dates: start: 20100205
  5. SERESTA [Concomitant]
     Route: 048
  6. DEXERYL [Concomitant]
     Route: 003
     Dates: start: 20091211

REACTIONS (2)
  - ALCOHOLISM [None]
  - BENIGN OESOPHAGEAL NEOPLASM [None]
